FAERS Safety Report 17812822 (Version 1)
Quarter: 2020Q2

REPORT INFORMATION
  Report Type: Spontaneous
  Country: US (occurrence: US)
  Receive Date: 20200521
  Receipt Date: 20200521
  Transmission Date: 20200714
  Serious: No
  Sender: FDA-Public Use
  Company Number: US-BAUSCH-BL-2020-013546

PATIENT
  Age: 63 Year
  Sex: Female

DRUGS (2)
  1. LACRISERT [Suspect]
     Active Substance: HYDROXYPROPYL CELLULOSE
     Dosage: RESTARTED ON AN UNKNOWN DATE AFTER A WEEK OF RAN OUT OF MEDICATION.
     Route: 047
  2. LACRISERT [Suspect]
     Active Substance: HYDROXYPROPYL CELLULOSE
     Indication: SJOGREN^S SYNDROME
     Dosage: STARTED SINCE THE 1980^S AND RAN OUT ON //2008 FOR A WEEK
     Route: 047
     Dates: end: 2008

REACTIONS (3)
  - Product supply issue [Unknown]
  - Corneal abrasion [Recovered/Resolved]
  - Therapy interrupted [Unknown]

NARRATIVE: CASE EVENT DATE: 2008
